FAERS Safety Report 23176995 (Version 1)
Quarter: 2023Q4

REPORT INFORMATION
  Report Type: Spontaneous
  Country: DE (occurrence: DE)
  Receive Date: 20231113
  Receipt Date: 20231113
  Transmission Date: 20240109
  Serious: Yes (Hospitalization, Other)
  Sender: FDA-Public Use
  Company Number: DE-SA-2018SA125518

PATIENT
  Age: 58 Year
  Sex: Female
  Weight: 55 kg

DRUGS (6)
  1. IBUPROFEN [Suspect]
     Active Substance: IBUPROFEN
     Indication: Product used for unknown indication
     Dosage: DOSE DESCRIPTION : UNK UNK,UNK
     Route: 065
  2. DICLOFENAC SODIUM [Suspect]
     Active Substance: DICLOFENAC\DICLOFENAC SODIUM
     Indication: Product used for unknown indication
     Dosage: DOSE DESCRIPTION : UNK UNK,UNK
     Route: 065
  3. THEOPHYLLINE [Concomitant]
     Active Substance: THEOPHYLLINE
     Dosage: DOSE DESCRIPTION : 250 MG,BID
     Route: 048
  4. METAMIZOLE [Concomitant]
     Active Substance: METAMIZOLE
     Indication: Product used for unknown indication
     Route: 065
  5. PANTOPRAZOLE [Concomitant]
     Active Substance: PANTOPRAZOLE
     Indication: Product used for unknown indication
     Route: 065
  6. PREDNISOLONE [Concomitant]
     Active Substance: PREDNISOLONE
     Dosage: DOSE DESCRIPTION : 20 MG,UNK
     Route: 065

REACTIONS (8)
  - General physical health deterioration [Unknown]
  - Drug-induced liver injury [Unknown]
  - Nausea [Unknown]
  - Jaundice [Unknown]
  - Vomiting [Unknown]
  - Liver disorder [Unknown]
  - Product prescribing error [Unknown]
  - Off label use [Unknown]
